FAERS Safety Report 5225006-4 (Version None)
Quarter: 2007Q1

REPORT INFORMATION
  Report Type: 
  Country: None (occurrence: None)
  Receive Date: 20070126
  Receipt Date: 20070115
  Transmission Date: 20070707
  Serious: Yes (Death)
  Sender: FDA-Public Use
  Company Number: FRWYE212617JAN07

PATIENT
  Age: 56 Year
  Sex: Female

DRUGS (5)
  1. EFFEXOR [Suspect]
     Dosage: UNKNOWN OVERDOSE AMOUNT RESULTING IN A BLOOD LEVEL OF 8.6 MG/L, ORAL
     Route: 048
  2. EQUANIL [Suspect]
     Dosage: UNKNOWN OVERDOSE RESULTING IN A BLOOD LEVEL OF 108 MG/L, ORAL
     Route: 048
  3. AMITRIPTYLINE HCL [Suspect]
     Dosage: UNKNOWN OVERDOSE AMOUNT RESULTING IN A BLOOD LEVEL OF 1 MG/L, ORAL
     Route: 048
  4. THERALENE (ALIMEMAZINE TARTRATE) [Concomitant]
  5. XANAX [Concomitant]

REACTIONS (3)
  - CARDIOTOXICITY [None]
  - DRUG INTERACTION [None]
  - OVERDOSE [None]
